FAERS Safety Report 16297913 (Version 2)
Quarter: 2019Q2

REPORT INFORMATION
  Report Type: Spontaneous
  Country: JP (occurrence: JP)
  Receive Date: 20190510
  Receipt Date: 20190513
  Transmission Date: 20190711
  Serious: Yes (Death, Other)
  Sender: FDA-Public Use
  Company Number: JP-OTSUKA-2019_007876

PATIENT

DRUGS (1)
  1. SAMSCA [Suspect]
     Active Substance: TOLVAPTAN
     Indication: HEPATIC CIRRHOSIS
     Dosage: 1 DF, QD
     Route: 065

REACTIONS (4)
  - Product administration error [Unknown]
  - Urine output decreased [Unknown]
  - Hepatic failure [Fatal]
  - Incorrect dose administered [Unknown]
